FAERS Safety Report 15514724 (Version 9)
Quarter: 2020Q2

REPORT INFORMATION
  Report Type: Report from Study
  Country: CA (occurrence: CA)
  Receive Date: 20181016
  Receipt Date: 20200609
  Transmission Date: 20200713
  Serious: Yes (Other)
  Sender: FDA-Public Use
  Company Number: PHHY2018CA124241

PATIENT
  Age: 48 Year
  Sex: Male

DRUGS (5)
  1. OTEZLA [Concomitant]
     Active Substance: APREMILAST
     Indication: PRODUCT USED FOR UNKNOWN INDICATION
     Route: 065
  2. DICLOFENAC SANDOZ [Suspect]
     Active Substance: DICLOFENAC SODIUM
     Indication: ANKYLOSING SPONDYLITIS
     Dosage: 1 DF, BID
     Route: 048
     Dates: start: 2017
  3. HUMIRA [Concomitant]
     Active Substance: ADALIMUMAB
     Indication: PRODUCT USED FOR UNKNOWN INDICATION
     Dosage: UNK, Q2MO
     Route: 065
     Dates: start: 2017, end: 2017
  4. SIMPONI [Concomitant]
     Active Substance: GOLIMUMAB
     Indication: PRODUCT USED FOR UNKNOWN INDICATION
     Dosage: QMO
     Route: 065
     Dates: start: 201805, end: 20180814
  5. TYLENOL ARTHRITIS PAIN [Concomitant]
     Active Substance: ACETAMINOPHEN
     Indication: PRODUCT USED FOR UNKNOWN INDICATION
     Dosage: UNK UNK, PRN
     Route: 065

REACTIONS (19)
  - Hypersensitivity [Not Recovered/Not Resolved]
  - Skin discolouration [Unknown]
  - Fatigue [Unknown]
  - Arthralgia [Unknown]
  - Joint swelling [Unknown]
  - Ankylosing spondylitis [Unknown]
  - Back pain [Unknown]
  - Vascular pain [Unknown]
  - Mobility decreased [Unknown]
  - Abdominal pain upper [Unknown]
  - Mouth swelling [Unknown]
  - Discomfort [Unknown]
  - Swollen tongue [Not Recovered/Not Resolved]
  - Post procedural swelling [Unknown]
  - Arterial occlusive disease [Unknown]
  - Necrosis [Unknown]
  - Pain in extremity [Unknown]
  - Drug intolerance [Unknown]
  - Musculoskeletal stiffness [Unknown]

NARRATIVE: CASE EVENT DATE: 20181010
